FAERS Safety Report 5299045-1 (Version None)
Quarter: 2007Q2

REPORT INFORMATION
  Report Type: 
  Country: None (occurrence: None)
  Receive Date: 20070412
  Receipt Date: 20070412
  Transmission Date: 20071010
  Serious: No
  Sender: FDA-Public Use
  Company Number: None

PATIENT
  Sex: Male
  Weight: 91.173 kg

DRUGS (7)
  1. FLUOXETINE [Suspect]
     Indication: DEPRESSION
     Dosage: 60 MG QAM PO
     Route: 048
     Dates: start: 20070326, end: 20070410
  2. FLUOXETINE [Suspect]
     Indication: INTERMITTENT EXPLOSIVE DISORDER
     Dosage: 60 MG QAM PO
     Route: 048
     Dates: start: 20070326, end: 20070410
  3. FLUOXETINE [Suspect]
     Indication: OBSESSIVE-COMPULSIVE DISORDER
     Dosage: 60 MG QAM PO
     Route: 048
     Dates: start: 20070326, end: 20070410
  4. TOPAMAX [Concomitant]
  5. CEREFOLIN [Concomitant]
  6. NEXIUM [Concomitant]
  7. COROMEGA [Concomitant]

REACTIONS (10)
  - COMPULSIONS [None]
  - DECREASED APPETITE [None]
  - DELAYED SLEEP PHASE [None]
  - DEPRESSED MOOD [None]
  - INITIAL INSOMNIA [None]
  - IRRITABILITY [None]
  - PERSECUTORY DELUSION [None]
  - PHARMACEUTICAL PRODUCT COMPLAINT [None]
  - RESTLESSNESS [None]
  - THERAPEUTIC RESPONSE UNEXPECTED WITH DRUG SUBSTITUTION [None]
